FAERS Safety Report 13645904 (Version 1)
Quarter: 2017Q2

REPORT INFORMATION
  Report Type: Spontaneous
  Country: CA (occurrence: CA)
  Receive Date: 20170613
  Receipt Date: 20170613
  Transmission Date: 20170830
  Serious: Yes (Hospitalization)
  Sender: FDA-Public Use
  Company Number: CA-ASTRAZENECA-2017SE60262

PATIENT
  Age: 58 Year
  Sex: Male

DRUGS (20)
  1. EFFEXOR XR [Interacting]
     Active Substance: VENLAFAXINE HYDROCHLORIDE
     Indication: POST-TRAUMATIC STRESS DISORDER
     Route: 065
  2. ATIVAN [Interacting]
     Active Substance: LORAZEPAM
     Indication: SLEEP DISORDER THERAPY
     Route: 060
  3. IMOVANE [Interacting]
     Active Substance: ZOPICLONE
     Dosage: 7.5MG UNKNOWN
     Route: 065
  4. NICOTINE. [Interacting]
     Active Substance: NICOTINE
     Dosage: 10 MCG IN EVERY 20 MINUTES
     Route: 055
  5. SEROQUEL [Interacting]
     Active Substance: QUETIAPINE FUMARATE
     Route: 048
  6. EFFEXOR XR [Interacting]
     Active Substance: VENLAFAXINE HYDROCHLORIDE
     Indication: FLASHBACK
     Dosage: UNKNOWN
     Route: 065
  7. NICORETTE [Interacting]
     Active Substance: NICOTINE
     Route: 048
  8. EFFEXOR XR [Interacting]
     Active Substance: VENLAFAXINE HYDROCHLORIDE
     Indication: POST-TRAUMATIC STRESS DISORDER
     Route: 065
  9. EFFEXOR XR [Interacting]
     Active Substance: VENLAFAXINE HYDROCHLORIDE
     Indication: MAJOR DEPRESSION
     Route: 065
  10. EFFEXOR XR [Interacting]
     Active Substance: VENLAFAXINE HYDROCHLORIDE
     Indication: FLASHBACK
     Route: 065
  11. EFFEXOR XR [Interacting]
     Active Substance: VENLAFAXINE HYDROCHLORIDE
     Indication: FLASHBACK
     Route: 065
  12. NIZORAL [Interacting]
     Active Substance: KETOCONAZOLE
     Route: 065
  13. EFFEXOR XR [Interacting]
     Active Substance: VENLAFAXINE HYDROCHLORIDE
     Indication: POST-TRAUMATIC STRESS DISORDER
     Dosage: UNKNOWN
     Route: 065
  14. IMOVANE [Interacting]
     Active Substance: ZOPICLONE
     Dosage: 7.5MG UNKNOWN
     Route: 065
  15. SEROQUEL [Suspect]
     Active Substance: QUETIAPINE FUMARATE
     Route: 048
  16. SEROQUEL [Interacting]
     Active Substance: QUETIAPINE FUMARATE
     Route: 048
  17. EFFEXOR XR [Interacting]
     Active Substance: VENLAFAXINE HYDROCHLORIDE
     Indication: MAJOR DEPRESSION
     Dosage: UNKNOWN
     Route: 065
  18. SEROQUEL [Interacting]
     Active Substance: QUETIAPINE FUMARATE
     Route: 048
  19. ATIVAN [Interacting]
     Active Substance: LORAZEPAM
     Indication: SLEEP DISORDER THERAPY
     Route: 065
  20. EFFEXOR XR [Interacting]
     Active Substance: VENLAFAXINE HYDROCHLORIDE
     Indication: MAJOR DEPRESSION
     Route: 065

REACTIONS (12)
  - Insomnia [Unknown]
  - Loss of consciousness [Unknown]
  - Drug hypersensitivity [Unknown]
  - Intentional product misuse [Unknown]
  - Nerve injury [Unknown]
  - Pain [Unknown]
  - Accidental overdose [Unknown]
  - Jaw fracture [Unknown]
  - Drug effect decreased [Unknown]
  - Drug interaction [Unknown]
  - Lip pain [Unknown]
  - Dizziness [Unknown]
